FAERS Safety Report 8470521-3 (Version None)
Quarter: 2012Q2

REPORT INFORMATION
  Report Type: 
  Country: None (occurrence: None)
  Receive Date: 20120627
  Receipt Date: 20111215
  Transmission Date: 20120825
  Serious: No
  Sender: FDA-Public Use
  Company Number: US-MYLANLABS-2011S1025435

PATIENT
  Age: 70 Year
  Sex: Male

DRUGS (1)
  1. PERFOROMIST [Suspect]
     Indication: CHRONIC OBSTRUCTIVE PULMONARY DISEASE
     Route: 055
     Dates: start: 20111208

REACTIONS (3)
  - BLOOD PRESSURE DECREASED [None]
  - ASTHENIA [None]
  - FATIGUE [None]
